FAERS Safety Report 8227444-4 (Version None)
Quarter: 2012Q1

REPORT INFORMATION
  Report Type: 
  Country: None (occurrence: None)
  Receive Date: 20120322
  Receipt Date: 20120311
  Transmission Date: 20120608
  Serious: No
  Sender: FDA-Public Use
  Company Number: US-BAYER-2012-025656

PATIENT

DRUGS (2)
  1. ALEVE (CAPLET) [Suspect]
     Indication: BACK PAIN
     Route: 048
  2. IBUPROFEN (ADVIL) [Concomitant]
     Indication: BACK PAIN
     Route: 048

REACTIONS (2)
  - ANAL PRURITUS [None]
  - ANORECTAL DISCOMFORT [None]
